FAERS Safety Report 21561578 (Version 2)
Quarter: 2022Q4

REPORT INFORMATION
  Report Type: Spontaneous
  Country: US (occurrence: US)
  Receive Date: 20221107
  Receipt Date: 20221108
  Transmission Date: 20230113
  Serious: No
  Sender: FDA-Public Use
  Company Number: US-PFIZER INC-202201276583

PATIENT
  Age: 62 Year
  Sex: Male
  Weight: 74.84 kg

DRUGS (4)
  1. PAXLOVID [Suspect]
     Active Substance: NIRMATRELVIR\RITONAVIR
     Indication: COVID-19 treatment
     Dosage: PF-07321332 300 MG]/[RITONAVIR 100 MG], 2X/DAY
     Route: 048
     Dates: start: 20221030, end: 20221102
  2. TYLENOL [Concomitant]
     Active Substance: ACETAMINOPHEN
     Indication: Pain
     Dosage: UNK
  3. VITAMIN C [Concomitant]
     Active Substance: ASCORBIC ACID
     Dosage: UNK
  4. ZICAM [OXYMETAZOLINE HYDROCHLORIDE] [Concomitant]
     Dosage: UNK

REACTIONS (2)
  - Rash erythematous [Not Recovered/Not Resolved]
  - Dermatitis [Not Recovered/Not Resolved]

NARRATIVE: CASE EVENT DATE: 20221102
